FAERS Safety Report 16748145 (Version 6)
Quarter: 2020Q2

REPORT INFORMATION
  Report Type: Report from Study
  Country: US (occurrence: US)
  Receive Date: 20190827
  Receipt Date: 20200518
  Transmission Date: 20200713
  Serious: Yes (Hospitalization, Disabling)
  Sender: FDA-Public Use
  Company Number: US-GILEAD-2019-0418943

PATIENT
  Age: 64 Year
  Sex: Male
  Weight: 65.1 kg

DRUGS (71)
  1. CYCLOPHOSPHAMIDE. [Suspect]
     Active Substance: CYCLOPHOSPHAMIDE
     Indication: BONE MARROW CONDITIONING REGIMEN
     Dosage: ^500,^ QD
     Route: 042
     Dates: start: 20190704, end: 20190706
  2. ALVESCO [Concomitant]
     Active Substance: CICLESONIDE
     Dosage: TWICE DAILY
     Dates: start: 20190418
  3. ZOFRAN [Concomitant]
     Active Substance: ONDANSETRON HYDROCHLORIDE
     Dosage: AS NECESSARY
     Dates: start: 20190719
  4. BENADRYL [Concomitant]
     Active Substance: DIPHENHYDRAMINE HYDROCHLORIDE
     Dosage: ONCE
     Dates: start: 20190709, end: 20190709
  5. ACYCLOVIR [ACICLOVIR] [Concomitant]
     Active Substance: ACYCLOVIR
     Dosage: THREE TIMES DAILY
     Dates: start: 20190704
  6. COLACE [Concomitant]
     Active Substance: DOCUSATE SODIUM
     Dosage: AS NECESSARY
     Dates: start: 20190708, end: 20190711
  7. NORMAL SALINE [Concomitant]
     Active Substance: SODIUM CHLORIDE
     Dosage: ONCE
     Dates: start: 20190719, end: 20190719
  8. SENOKOT [Concomitant]
     Active Substance: SENNOSIDES
     Dosage: AS NECESSARY
     Dates: start: 20190709, end: 20190714
  9. ACETAMINOPHEN. [Concomitant]
     Active Substance: ACETAMINOPHEN
     Dosage: ONCE
     Dates: start: 20190714, end: 20190714
  10. GADOBENATE DIMEGLUMINE [Concomitant]
     Active Substance: GADOBENATE DIMEGLUMINE
     Dosage: ONCE
     Dates: start: 20190714, end: 20190714
  11. PROVENTIL [Concomitant]
     Active Substance: ALBUTEROL
     Dosage: ONCE
     Dates: start: 20190718, end: 20190718
  12. OXYCODONE [Concomitant]
     Active Substance: OXYCODONE
     Dosage: ONCE
     Dates: start: 20190718, end: 20190718
  13. PROTONIX [Concomitant]
     Active Substance: PANTOPRAZOLE SODIUM
     Dosage: DAILY
     Dates: start: 20190718
  14. ATIVAN [Concomitant]
     Active Substance: LORAZEPAM
     Dosage: ONCE
     Dates: start: 20190721, end: 20190721
  15. NORMAL SALINE [Concomitant]
     Active Substance: SODIUM CHLORIDE
     Dosage: CONTINUOUS
     Dates: start: 20190721, end: 20190721
  16. AXICABTAGENE CILOLEUCEL [Suspect]
     Active Substance: AXICABTAGENE CILOLEUCEL
     Indication: DIFFUSE LARGE B-CELL LYMPHOMA
     Dosage: ^68^
     Route: 042
     Dates: start: 20190709, end: 20190709
  17. UTOMILUMAB [Suspect]
     Active Substance: UTOMILUMAB
     Dosage: 30
     Route: 042
     Dates: start: 20190807, end: 20190807
  18. UTOMILUMAB [Suspect]
     Active Substance: UTOMILUMAB
     Dosage: 50
     Route: 042
     Dates: start: 20191126, end: 20191126
  19. EMEND [FOSAPREPITANT MEGLUMINE] [Concomitant]
     Dosage: ONCE
     Dates: start: 20190704, end: 20190704
  20. BENADRYL [Concomitant]
     Active Substance: DIPHENHYDRAMINE HYDROCHLORIDE
     Dosage: AS NECESSARY
     Dates: start: 20190704, end: 20190704
  21. ALLOPURINOL. [Concomitant]
     Active Substance: ALLOPURINOL
     Dosage: DAILY
     Dates: start: 20190704, end: 20190704
  22. NORMAL SALINE [Concomitant]
     Active Substance: SODIUM CHLORIDE
     Dosage: ONCE
     Dates: start: 20190714, end: 20190714
  23. NORMAL SALINE [Concomitant]
     Active Substance: SODIUM CHLORIDE
     Dosage: ONCE
     Dates: start: 20190722, end: 20190722
  24. DESYREL [Concomitant]
     Active Substance: TRAZODONE HYDROCHLORIDE
     Dosage: AS NECESSARY
     Dates: start: 20190709, end: 20190718
  25. DESYREL [Concomitant]
     Active Substance: TRAZODONE HYDROCHLORIDE
     Dosage: AS NECESSARY
     Dates: start: 20190721, end: 20190723
  26. ACETAMINOPHEN. [Concomitant]
     Active Substance: ACETAMINOPHEN
     Dosage: ONCE
     Dates: start: 20190715, end: 20190715
  27. IBUPROFEN. [Concomitant]
     Active Substance: IBUPROFEN
     Dosage: ONCE
     Dates: start: 20190715, end: 20190715
  28. MELATONIN [Concomitant]
     Active Substance: MELATONIN
     Dosage: ONCE
     Dates: start: 20190716, end: 20190716
  29. MESNA. [Suspect]
     Active Substance: MESNA
     Indication: PROPHYLAXIS
     Route: 042
  30. COMPAZINE [Concomitant]
     Active Substance: PROCHLORPERAZINE MALEATE
     Dosage: AS NECESSARY
     Dates: start: 20190704, end: 20190707
  31. ATIVAN [Concomitant]
     Active Substance: LORAZEPAM
     Dosage: AS NECESSARY
     Dates: start: 20190704, end: 20190708
  32. PEPCID [Concomitant]
     Active Substance: FAMOTIDINE
     Dosage: TWICE DAILY
     Dates: start: 20190708, end: 20190711
  33. POTASSIUM CHLORIDE. [Concomitant]
     Active Substance: POTASSIUM CHLORIDE
     Dosage: AS NECESSARY
     Dates: start: 20190717, end: 20190718
  34. ACETAMINOPHEN. [Concomitant]
     Active Substance: ACETAMINOPHEN
     Dosage: ONCE
     Dates: start: 20190713, end: 20190716
  35. ZOSYN [Concomitant]
     Active Substance: PIPERACILLIN SODIUM\TAZOBACTAM SODIUM
     Dosage: THREE TIMES DAILY
     Dates: start: 20190715, end: 20190715
  36. ZYRTEC [Concomitant]
     Active Substance: CETIRIZINE HYDROCHLORIDE
     Dosage: AS NECESSARY
     Dates: start: 20190719
  37. UTOMILUMAB [Suspect]
     Active Substance: UTOMILUMAB
     Indication: DIFFUSE LARGE B-CELL LYMPHOMA
     Dosage: 30
     Route: 042
     Dates: start: 20190710, end: 20190710
  38. UTOMILUMAB [Suspect]
     Active Substance: UTOMILUMAB
     Dosage: 30
     Route: 042
     Dates: start: 20190905, end: 20190905
  39. VENTOLIN HFA [Concomitant]
     Active Substance: ALBUTEROL SULFATE
     Dosage: AS NECESSARY
     Dates: start: 2017
  40. REVATIO [Concomitant]
     Active Substance: SILDENAFIL CITRATE
     Dosage: AS NECESSARY
     Dates: start: 2017
  41. NORMAL SALINE [Concomitant]
     Active Substance: SODIUM CHLORIDE
     Dosage: CONTINUOUS
     Dates: start: 20190708, end: 20190719
  42. TYLENOL [Concomitant]
     Active Substance: ACETAMINOPHEN
     Dosage: OTHER
     Dates: start: 20190713, end: 20190716
  43. POTASSIUM CHLORIDE. [Concomitant]
     Active Substance: POTASSIUM CHLORIDE
     Dosage: AS NECESSARY
     Dates: start: 20190709, end: 20190719
  44. LIDOCAINE. [Concomitant]
     Active Substance: LIDOCAINE
     Dosage: AS NECESSARY
     Dates: start: 20190715, end: 20190715
  45. MELATONIN [Concomitant]
     Active Substance: MELATONIN
     Dosage: DAILY
     Dates: start: 20190717, end: 20190718
  46. UTOMILUMAB [Suspect]
     Active Substance: UTOMILUMAB
     Dosage: 50
     Route: 042
     Dates: start: 20191031, end: 20191031
  47. ZOFRAN [Concomitant]
     Active Substance: ONDANSETRON HYDROCHLORIDE
     Dosage: ONCE
     Dates: start: 20190705, end: 20190705
  48. ZOFRAN [Concomitant]
     Active Substance: ONDANSETRON HYDROCHLORIDE
     Dosage: ONCE
     Dates: start: 20190706, end: 20190706
  49. ZOFRAN [Concomitant]
     Active Substance: ONDANSETRON HYDROCHLORIDE
     Dosage: DAILY
     Dates: start: 20190708, end: 20190710
  50. ZOSYN [Concomitant]
     Active Substance: PIPERACILLIN SODIUM\TAZOBACTAM SODIUM
     Dosage: ONCE
     Dates: start: 20190714, end: 20190714
  51. DILAUDID [Concomitant]
     Active Substance: HYDROMORPHONE HYDROCHLORIDE
     Dosage: ONCE
     Dates: start: 20190714, end: 20190714
  52. LIDOCAINE. [Concomitant]
     Active Substance: LIDOCAINE
     Dosage: ONCE
     Dates: start: 20190721, end: 20190721
  53. MELATONIN [Concomitant]
     Active Substance: MELATONIN
     Dosage: AS NECESSARY
     Dates: start: 20190719
  54. FLUDARABINE [Suspect]
     Active Substance: FLUDARABINE PHOSPHATE
     Indication: BONE MARROW CONDITIONING REGIMEN
     Dosage: ^30,^ QD
     Route: 042
     Dates: start: 20190704, end: 20190706
  55. UTOMILUMAB [Suspect]
     Active Substance: UTOMILUMAB
     Dosage: 50
     Route: 042
     Dates: start: 20191002, end: 20191002
  56. ZOFRAN [Concomitant]
     Active Substance: ONDANSETRON HYDROCHLORIDE
     Dosage: ONCE
     Dates: start: 20190704, end: 20190704
  57. COLACE [Concomitant]
     Active Substance: DOCUSATE SODIUM
     Dosage: ONCE
     Dates: start: 20190723, end: 20190723
  58. TYLENOL [Concomitant]
     Active Substance: ACETAMINOPHEN
     Dosage: ONCE
     Dates: start: 20190709, end: 20190709
  59. TYLENOL [Concomitant]
     Active Substance: ACETAMINOPHEN
     Dosage: DAILY
     Dates: start: 20190722, end: 20190723
  60. NEUPOGEN [Concomitant]
     Active Substance: FILGRASTIM
     Dosage: AS NECESSARY
     Dates: start: 20190714, end: 20190717
  61. GADOBENATE DIMEGLUMINE [Concomitant]
     Active Substance: GADOBENATE DIMEGLUMINE
     Dosage: ONCE
     Dates: start: 20190721, end: 20190721
  62. LIDOCAINE. [Concomitant]
     Active Substance: LIDOCAINE
     Dosage: AS NECESSARY
     Dates: start: 20190715, end: 20190715
  63. ALLOPURINOL. [Concomitant]
     Active Substance: ALLOPURINOL
     Dosage: DAILY
     Dates: start: 20190704, end: 20190708
  64. KEPPRA [Concomitant]
     Active Substance: LEVETIRACETAM
     Dosage: TWICE DAILY
     Dates: start: 20190708, end: 20190721
  65. KEPPRA [Concomitant]
     Active Substance: LEVETIRACETAM
     Dosage: TWICE DAILY
     Dates: start: 20190721
  66. NORMAL SALINE [Concomitant]
     Active Substance: SODIUM CHLORIDE
     Dosage: THREE TIMES DAILY
     Dates: start: 20190709, end: 20190710
  67. NORMAL SALINE [Concomitant]
     Active Substance: SODIUM CHLORIDE
     Dosage: ONCE
     Dates: start: 20190715, end: 20190715
  68. POTASSIUM CHLORIDE. [Concomitant]
     Active Substance: POTASSIUM CHLORIDE
     Dosage: AS NECESSARY
     Dates: start: 20190709, end: 20190711
  69. DESYREL [Concomitant]
     Active Substance: TRAZODONE HYDROCHLORIDE
     Dosage: ONCE
     Dates: start: 20190718, end: 20190718
  70. FENTANYL. [Concomitant]
     Active Substance: FENTANYL
     Dosage: AS NECESSARY
     Dates: start: 20190715, end: 20190715
  71. VERSED [Concomitant]
     Active Substance: MIDAZOLAM HYDROCHLORIDE
     Dosage: AS NECESSARY
     Dates: start: 20190715, end: 20190715

REACTIONS (6)
  - Pyrexia [Recovered/Resolved]
  - Hypotension [Recovered/Resolved]
  - Aphasia [Recovered/Resolved]
  - Dizziness [Recovered/Resolved]
  - Confusional state [Recovering/Resolving]
  - Hypotension [Recovered/Resolved]

NARRATIVE: CASE EVENT DATE: 20190716
